FAERS Safety Report 7791511-X (Version None)
Quarter: 2011Q4

REPORT INFORMATION
  Report Type: 
  Country: None (occurrence: None)
  Receive Date: 20111003
  Receipt Date: 20110926
  Transmission Date: 20120403
  Serious: Yes (Other)
  Sender: FDA-Public Use
  Company Number: PK-GENZYME-FLUD-1001384

PATIENT
  Age: 12 Year
  Sex: Male

DRUGS (9)
  1. ANTI-THYMOCYTE GLOBULIN NOS [Suspect]
     Indication: APLASTIC ANAEMIA
  2. FLUDARA [Suspect]
     Indication: BONE MARROW CONDITIONING REGIMEN
     Dosage: 30 MG/M2, QD (X DAYS)
     Route: 065
  3. FLUDARA [Suspect]
     Indication: APLASTIC ANAEMIA
  4. CYCLOPHOSPHAMIDE [Suspect]
     Indication: APLASTIC ANAEMIA
  5. CYCLOPHOSPHAMIDE [Suspect]
     Indication: BONE MARROW CONDITIONING REGIMEN
     Dosage: 300 MG/M2, QD (X4 DAYS)
     Route: 065
  6. CYCLOSPORINE [Concomitant]
     Indication: PROPHYLAXIS AGAINST GRAFT VERSUS HOST DISEASE
     Dosage: UNK
     Route: 065
  7. PREDNISOLONE [Concomitant]
     Indication: PROPHYLAXIS AGAINST GRAFT VERSUS HOST DISEASE
     Dosage: UNK
     Route: 065
  8. METHOTREXATE [Concomitant]
     Indication: PROPHYLAXIS AGAINST GRAFT VERSUS HOST DISEASE
     Dosage: UNK
     Route: 065
  9. ANTI-THYMOCYTE GLOBULIN NOS [Suspect]
     Indication: BONE MARROW CONDITIONING REGIMEN
     Dosage: 3.75 MG/KG, QD (X4 DAYS)
     Route: 065

REACTIONS (2)
  - POLYCYTHAEMIA [None]
  - HYPERTENSION [None]
